FAERS Safety Report 5170381-2 (Version None)
Quarter: 2006Q4

REPORT INFORMATION
  Report Type: 
  Country: None (occurrence: None)
  Receive Date: 20061204
  Receipt Date: 20061122
  Transmission Date: 20070319
  Serious: Yes (Life-Threatening, Hospitalization)
  Sender: FDA-Public Use
  Company Number: 2006131737

PATIENT
  Age: 67 Year
  Sex: Male
  Weight: 80 kg

DRUGS (6)
  1. SOLU-MEDRONE (METHYLPREDNISOLONE SODIUM SUCCINATE) [Suspect]
     Indication: TEMPORAL ARTERITIS
     Dosage: 500 MG, INTERVAL:  EVERY MONTH
     Dates: start: 20060427
  2. PREDNISOLONE [Concomitant]
  3. CYCLOPHOSPHAMIDE [Concomitant]
  4. ASPIRIN [Concomitant]
  5. SERETIDE (FLUTICASONE PROPIONAE, SALMETEROL) [Concomitant]
  6. SALBUTAMOL (SALBUTAMOL) [Concomitant]

REACTIONS (1)
  - HYPERSENSITIVITY [None]
